FAERS Safety Report 20225259 (Version 3)
Quarter: 2022Q1

REPORT INFORMATION
  Report Type: Report from Study
  Country: US (occurrence: None)
  Receive Date: 20211223
  Receipt Date: 20220303
  Transmission Date: 20220423
  Serious: Yes (Other)
  Sender: FDA-Public Use
  Company Number: US-ROCHE-2983560

PATIENT
  Age: 65 Year
  Sex: Female
  Weight: 51.5 kg

DRUGS (2)
  1. ATEZOLIZUMAB [Suspect]
     Active Substance: ATEZOLIZUMAB
     Indication: Non-small cell lung cancer
     Dosage: ON 03/FEB/2021, HE HAD LAST DOSE ATEZOLIZUMAB 1680 MG.
     Route: 041
     Dates: start: 20201230
  2. COBIMETINIB [Suspect]
     Active Substance: COBIMETINIB
     Indication: Non-small cell lung cancer
     Dosage: 23/FEB/2021, SHE HAD LAST DOSE OF COBIMETINIB 60 MG.
     Route: 042
     Dates: start: 20201230

REACTIONS (2)
  - Platelet count decreased [Recovered/Resolved]
  - Hyperkalaemia [Recovered/Resolved]

NARRATIVE: CASE EVENT DATE: 20210127
